FAERS Safety Report 19747580 (Version 1)
Quarter: 2021Q3

REPORT INFORMATION
  Report Type: Spontaneous
  Country: US (occurrence: US)
  Receive Date: 20210825
  Receipt Date: 20210825
  Transmission Date: 20211014
  Serious: No
  Sender: FDA-Public Use
  Company Number: US-ASTRAZENECA-2021A692256

PATIENT
  Sex: Female
  Weight: 86.2 kg

DRUGS (7)
  1. FASENRA [Suspect]
     Active Substance: BENRALIZUMAB
     Indication: ASTHMA
     Dosage: 30.0MG UNKNOWN
     Route: 058
     Dates: start: 20210806
  2. FASENRA [Suspect]
     Active Substance: BENRALIZUMAB
     Indication: EOSINOPHIL COUNT
     Dosage: 30.0MG UNKNOWN
     Route: 058
     Dates: start: 20210616
  3. FASENRA [Suspect]
     Active Substance: BENRALIZUMAB
     Indication: ASTHMA
     Dosage: 30.0MG UNKNOWN
     Route: 058
     Dates: start: 20210519
  4. FASENRA [Suspect]
     Active Substance: BENRALIZUMAB
     Indication: EOSINOPHIL COUNT
     Dosage: 30.0MG UNKNOWN
     Route: 058
     Dates: start: 20210806
  5. WARFARIN [Concomitant]
     Active Substance: WARFARIN
     Dosage: MG TABLET A DAY ON MOST DAYS BUT 2 DAYS A WEEK SHE TAKES HALF 5 MG TABLET,
     Route: 048
     Dates: start: 2018
  6. FASENRA [Suspect]
     Active Substance: BENRALIZUMAB
     Indication: EOSINOPHIL COUNT
     Dosage: 30.0MG UNKNOWN
     Route: 058
     Dates: start: 20210519
  7. FASENRA [Suspect]
     Active Substance: BENRALIZUMAB
     Indication: ASTHMA
     Dosage: 30.0MG UNKNOWN
     Route: 058
     Dates: start: 20210616

REACTIONS (3)
  - Dysphonia [Not Recovered/Not Resolved]
  - Cough [Not Recovered/Not Resolved]
  - Bronchial secretion retention [Not Recovered/Not Resolved]
